FAERS Safety Report 8067479-8 (Version None)
Quarter: 2012Q1

REPORT INFORMATION
  Report Type: 
  Country: None (occurrence: None)
  Receive Date: 20120124
  Receipt Date: 20120118
  Transmission Date: 20120608
  Serious: Yes (Other)
  Sender: FDA-Public Use
  Company Number: US-PFIZER INC-2012004942

PATIENT
  Sex: Female
  Weight: 97.002 kg

DRUGS (9)
  1. OMEPRAZOLE [Concomitant]
     Indication: DYSPEPSIA
     Dosage: 20 MG,DAILY
  2. NEURONTIN [Suspect]
     Indication: PAIN IN EXTREMITY
  3. NEURONTIN [Suspect]
     Indication: HYPOAESTHESIA
  4. EFFEXOR XR [Suspect]
     Indication: POST-TRAUMATIC STRESS DISORDER
     Dosage: 150 MG, DAILY
  5. EFFEXOR XR [Suspect]
     Indication: SUICIDAL IDEATION
     Dosage: 150 MG, DAILY
     Dates: start: 20110101, end: 20110901
  6. NEURONTIN [Suspect]
     Indication: BURNING SENSATION
  7. EFFEXOR XR [Suspect]
     Indication: DEPRESSION
     Dosage: 300 MG, DAILY
     Dates: start: 20080101, end: 20110101
  8. NEURONTIN [Suspect]
     Indication: FIBROMYALGIA
     Dosage: 600 MG, 2X/DAY
     Dates: start: 20110601, end: 20110101
  9. NEURONTIN [Suspect]
     Indication: PAIN
     Dosage: 400 MG, 2X/DAY
     Dates: start: 20110101

REACTIONS (8)
  - VISUAL IMPAIRMENT [None]
  - HYPERTENSION [None]
  - DISTURBANCE IN ATTENTION [None]
  - PAIN [None]
  - GAIT DISTURBANCE [None]
  - FEELING ABNORMAL [None]
  - CIRCUMSTANCE OR INFORMATION CAPABLE OF LEADING TO MEDICATION ERROR [None]
  - BURNING SENSATION [None]
